FAERS Safety Report 13350227 (Version 1)
Quarter: 2017Q1

REPORT INFORMATION
  Report Type: Spontaneous
  Country: US (occurrence: US)
  Receive Date: 20170317
  Receipt Date: 20170317
  Transmission Date: 20170429
  Serious: No
  Sender: FDA-Public Use
  Company Number: None

PATIENT
  Age: 55 Year
  Sex: Male

DRUGS (1)
  1. SPRYCEL [Suspect]
     Active Substance: DASATINIB
     Indication: LEUKAEMIA
     Route: 048
     Dates: start: 20170127, end: 20170317

REACTIONS (3)
  - Diarrhoea [None]
  - Abdominal pain [None]
  - Faeces discoloured [None]

NARRATIVE: CASE EVENT DATE: 20170317
